FAERS Safety Report 19395572 (Version 1)
Quarter: 2021Q2

REPORT INFORMATION
  Report Type: Spontaneous
  Country: JP (occurrence: JP)
  Receive Date: 20210609
  Receipt Date: 20210609
  Transmission Date: 20210717
  Serious: Yes (Death, Other)
  Sender: FDA-Public Use
  Company Number: JP-009507513-2106JPN000004J

PATIENT
  Age: 73 Year
  Sex: Female
  Weight: 43 kg

DRUGS (1)
  1. KEYTRUDA [Suspect]
     Active Substance: PEMBROLIZUMAB
     Indication: GASTRIC CANCER STAGE IV
     Dosage: 200 MILLIGRAM, Q3W
     Route: 041
     Dates: start: 20210519, end: 20210519

REACTIONS (1)
  - Tumour lysis syndrome [Fatal]

NARRATIVE: CASE EVENT DATE: 20210528
